FAERS Safety Report 20292171 (Version 1)
Quarter: 2022Q1

REPORT INFORMATION
  Report Type: Spontaneous
  Country: US (occurrence: None)
  Receive Date: 20220104
  Receipt Date: 20220104
  Transmission Date: 20220423
  Serious: Yes (Hospitalization)
  Sender: FDA-Public Use
  Company Number: None

PATIENT
  Age: 83 Year
  Sex: Female
  Weight: 72.9 kg

DRUGS (10)
  1. CAPECITABINE [Suspect]
     Active Substance: CAPECITABINE
     Indication: Rectal cancer
     Dosage: OTHER FREQUENCY : BID FOR 14/21 DAYS;?
     Route: 048
     Dates: start: 20211118
  2. ZOFRAN [Concomitant]
     Active Substance: ONDANSETRON HYDROCHLORIDE
  3. Metoprolol succinate ER 100mg [Concomitant]
  4. DOCUSATE [Concomitant]
     Active Substance: DOCUSATE
  5. ERGOCALCIFEROL [Concomitant]
     Active Substance: ERGOCALCIFEROL
  6. ASPIRIN [Concomitant]
     Active Substance: ASPIRIN
  7. QUETIAPINE [Concomitant]
     Active Substance: QUETIAPINE
  8. Losartan-HCTZ 100-25mg [Concomitant]
  9. SIMVASTATIN [Concomitant]
     Active Substance: SIMVASTATIN
  10. Glipizide-Metformin 5-500mg [Concomitant]

REACTIONS (2)
  - COVID-19 [None]
  - Unevaluable event [None]

NARRATIVE: CASE EVENT DATE: 20220103
